FAERS Safety Report 6845503-5 (Version None)
Quarter: 2010Q3

REPORT INFORMATION
  Report Type: 
  Country: None (occurrence: None)
  Receive Date: 20100715
  Receipt Date: 20070918
  Transmission Date: 20110219
  Serious: No
  Sender: FDA-Public Use
  Company Number: US-PFIZER INC-2007068632

PATIENT
  Sex: Female
  Weight: 81.8 kg

DRUGS (3)
  1. CHANTIX [Suspect]
     Indication: SMOKING CESSATION THERAPY
     Dates: start: 20070725
  2. DOSTINEX [Concomitant]
  3. SYNTHROID [Concomitant]

REACTIONS (3)
  - GLOSSITIS [None]
  - NAUSEA [None]
  - STOMATITIS [None]
